FAERS Safety Report 22228477 (Version 1)
Quarter: 2023Q2

REPORT INFORMATION
  Report Type: Spontaneous
  Country: US (occurrence: US)
  Receive Date: 20230419
  Receipt Date: 20230419
  Transmission Date: 20230721
  Serious: No
  Sender: FDA-Public Use
  Company Number: US-GE HEALTHCARE-2023CSU001111

PATIENT
  Age: 67 Year
  Sex: Female

DRUGS (14)
  1. DATSCAN [Suspect]
     Active Substance: IODINE\IOFLUPANE I-123
     Indication: Single photon emission computerised tomogram
     Dosage: 209.8 MBQ (5.67 MCI), ONCE
     Route: 065
     Dates: start: 20230216, end: 20230216
  2. DATSCAN [Suspect]
     Active Substance: IODINE\IOFLUPANE I-123
     Indication: Product used for unknown indication
  3. CARBIDOPA AND LEVODOPA [Concomitant]
     Active Substance: CARBIDOPA\LEVODOPA
     Dosage: 25-100 MG, QID
     Route: 048
  4. CARBIDOPA AND LEVODOPA [Concomitant]
     Active Substance: CARBIDOPA\LEVODOPA
     Dosage: 50-200 MG, AT BEDTIME
     Route: 048
  5. Citracal + D3 [Concomitant]
     Dosage: 200 MG, BID
  6. ESTRADIOL [Concomitant]
     Active Substance: ESTRADIOL
     Dosage: 1 GM, 2 TIMES PER WEEK
     Route: 067
  7. GABAPENTIN [Concomitant]
     Active Substance: GABAPENTIN
     Dosage: 300 MG, QID
     Route: 048
  8. INBRIJA [Concomitant]
     Active Substance: LEVODOPA
     Dosage: INHALE CONTENTS FOR 2 CAPSULES (84 MG) AS NEEDED, NOT TO EXCEED A TOTAL OF 5 DOSES
     Route: 050
  9. KLONOPIN [Concomitant]
     Active Substance: CLONAZEPAM
     Dosage: 0.5 MG, TID
     Route: 048
  10. MAGNESIUM OXIDE [Concomitant]
     Active Substance: MAGNESIUM OXIDE
     Dosage: 400 MG, QD
     Route: 048
  11. One daily women^s 50+ no iron [Concomitant]
     Dosage: 1 DF, QD
     Route: 048
  12. POTASSIUM CITRATE [Concomitant]
     Active Substance: POTASSIUM CITRATE
     Dosage: 10 MEQ, QD
     Route: 048
  13. RASAGILINE [Concomitant]
     Active Substance: RASAGILINE
     Dosage: 1 MG, QD
     Route: 048
  14. ZOFRAN [Concomitant]
     Active Substance: ONDANSETRON HYDROCHLORIDE
     Dosage: 4 MG, 4 TIMES PER DAY AS NEEDED
     Route: 048

REACTIONS (2)
  - Radioisotope scan abnormal [Recovered/Resolved]
  - No adverse event [Recovered/Resolved]

NARRATIVE: CASE EVENT DATE: 20230216
